FAERS Safety Report 14495047 (Version 1)
Quarter: 2018Q1

REPORT INFORMATION
  Report Type: Report from Study
  Country: BE (occurrence: BE)
  Receive Date: 20180206
  Receipt Date: 20180206
  Transmission Date: 20180509
  Serious: Yes (Life-Threatening, Hospitalization)
  Sender: FDA-Public Use
  Company Number: BE-MYLANLABS-2018M1007456

PATIENT
  Age: 36 Year
  Sex: Male
  Weight: 88 kg

DRUGS (5)
  1. MEDROL [Suspect]
     Active Substance: METHYLPREDNISOLONE
     Indication: BRAIN OEDEMA
     Dosage: 8 MG, QD
     Route: 048
     Dates: start: 20171229, end: 20180110
  2. INLYTA [Suspect]
     Active Substance: AXITINIB
     Indication: GLIOBLASTOMA
     Dosage: 5 MG, 2X/DAY
     Dates: start: 20171204, end: 20180110
  3. D-CURE [Suspect]
     Active Substance: CHOLECALCIFEROL
     Indication: VITAMIN D DEFICIENCY
     Dosage: 1 ML, DAILY
     Route: 048
     Dates: start: 20171218, end: 20180110
  4. LISINOPRIL. [Suspect]
     Active Substance: LISINOPRIL
     Indication: HYPERTENSION
     Dosage: 10 MG, QD
     Route: 048
     Dates: start: 20171218, end: 20180110
  5. BEFACT (CYANOCOBALAMIN\PYRIDOXINE\THIAMINE) [Suspect]
     Active Substance: CYANOCOBALAMIN\PYRIDOXINE\THIAMINE
     Indication: HYPOVITAMINOSIS
     Dosage: 1 DF, QD
     Dates: start: 20171218, end: 20180110

REACTIONS (1)
  - Pulmonary embolism [Recovering/Resolving]

NARRATIVE: CASE EVENT DATE: 20180110
